FAERS Safety Report 9682781 (Version 2)
Quarter: 2014Q3

REPORT INFORMATION
  Report Type: Spontaneous
  Country: US (occurrence: US)
  Receive Date: 20131112
  Receipt Date: 20140904
  Transmission Date: 20150326
  Serious: Yes (Other)
  Sender: FDA-Public Use
  Company Number: PHEH2013US023322

PATIENT
  Age: 68 Year
  Sex: Male

DRUGS (1)
  1. VALTURNA [Suspect]
     Active Substance: ALISKIREN HEMIFUMARATE\VALSARTAN
     Dosage: 1 DF (150/160 MG), QD
     Dates: start: 20101011, end: 20120719

REACTIONS (20)
  - Cerebrovascular accident [Unknown]
  - Alopecia [Unknown]
  - Neuropathy peripheral [Unknown]
  - Anhedonia [Unknown]
  - Renal failure chronic [Unknown]
  - Skin fissures [Unknown]
  - Hypertension [Unknown]
  - Injury [Unknown]
  - Dyslipidaemia [Unknown]
  - Blood potassium increased [Unknown]
  - Renal impairment [Unknown]
  - Pain [Unknown]
  - Deafness [Unknown]
  - Diverticulum intestinal [Unknown]
  - Hypotension [Unknown]
  - Hyperlipidaemia [Unknown]
  - Type 2 diabetes mellitus [Unknown]
  - Microalbuminuria [Unknown]
  - Skin ulcer [Unknown]
  - Erectile dysfunction [Unknown]

NARRATIVE: CASE EVENT DATE: 2012
